FAERS Safety Report 5746318-1 (Version None)
Quarter: 2008Q2

REPORT INFORMATION
  Report Type: 
  Country: None (occurrence: None)
  Receive Date: 20080520
  Receipt Date: 20080509
  Transmission Date: 20081010
  Serious: Yes (Other)
  Sender: FDA-Public Use
  Company Number: 2008-01620

PATIENT
  Age: 56 Year
  Sex: Female
  Weight: 52 kg

DRUGS (23)
  1. VELCADE [Suspect]
     Indication: MULTIPLE MYELOMA
     Dosage: 1.98 MG, INTRAVENOUS, 1.5 MG, INTRAVENOUS, 1.1 MG, INTRAVENOUS, 1.5 MG, INTRAVENOUS
     Route: 042
     Dates: start: 20070227, end: 20070309
  2. VELCADE [Suspect]
     Indication: MULTIPLE MYELOMA
     Dosage: 1.98 MG, INTRAVENOUS, 1.5 MG, INTRAVENOUS, 1.1 MG, INTRAVENOUS, 1.5 MG, INTRAVENOUS
     Route: 042
     Dates: start: 20070320, end: 20070422
  3. VELCADE [Suspect]
     Indication: MULTIPLE MYELOMA
     Dosage: 1.98 MG, INTRAVENOUS, 1.5 MG, INTRAVENOUS, 1.1 MG, INTRAVENOUS, 1.5 MG, INTRAVENOUS
     Route: 042
     Dates: start: 20070717, end: 20070907
  4. VELCADE [Suspect]
     Indication: MULTIPLE MYELOMA
     Dosage: 1.98 MG, INTRAVENOUS, 1.5 MG, INTRAVENOUS, 1.1 MG, INTRAVENOUS, 1.5 MG, INTRAVENOUS
     Route: 042
     Dates: start: 20070918, end: 20070928
  5. PREDNISOLONE [Concomitant]
  6. OMEPRAL (OMEPRAZOLE) [Concomitant]
  7. CALONAL (PARACETAMOL) [Concomitant]
  8. CLARITHROMYCIN [Concomitant]
  9. SULFAMETHOXAZOLE AND TRIMETHOPRIM [Concomitant]
  10. ZOLPIDEM TARTRATE [Concomitant]
  11. MUCOSTA (REBAMIPIDE) [Concomitant]
  12. CLONAZEPAM [Concomitant]
  13. RITALIN [Concomitant]
  14. FENTANYL [Concomitant]
  15. MAG-LAX (MAGNESIUM HYDROXIDE, PARAFFIN, LIQUID) [Concomitant]
  16. ETODOLAC [Concomitant]
  17. SENNOSIDE A (SENNOSIDE A) [Concomitant]
  18. LAXOSELIN (SODIUM PICOSULFATE) [Concomitant]
  19. SUMATRIPTAN SUCCINATE [Concomitant]
  20. ACYCLOVIR [Concomitant]
  21. ZOMETA [Concomitant]
  22. DOMPERIDONE (DOMPERIDONE) [Concomitant]
  23. CANDESARTAN CILEXETIL [Concomitant]

REACTIONS (13)
  - ABDOMINAL PAIN [None]
  - ANOREXIA [None]
  - ERYTHEMA [None]
  - HEADACHE [None]
  - HYPOAESTHESIA [None]
  - NAUSEA [None]
  - NEUTROPHIL COUNT DECREASED [None]
  - PLATELET COUNT DECREASED [None]
  - PROTEINURIA [None]
  - PYREXIA [None]
  - RASH [None]
  - SKIN INDURATION [None]
  - WHITE BLOOD CELL COUNT DECREASED [None]
